FAERS Safety Report 25991327 (Version 1)
Quarter: 2025Q4

REPORT INFORMATION
  Report Type: Spontaneous
  Country: US (occurrence: US)
  Receive Date: 20251103
  Receipt Date: 20251103
  Transmission Date: 20260117
  Serious: No
  Sender: SANOFI AVENTIS
  Company Number: US-SA-2025SA315137

PATIENT
  Sex: Male

DRUGS (13)
  1. DUPIXENT [Suspect]
     Active Substance: DUPILUMAB
     Indication: Hyper IgE syndrome
     Dosage: 600 MG, 1X
     Route: 058
  2. AMOXICILLIN [Concomitant]
     Active Substance: AMOXICILLIN
  3. FIBER TABS [Concomitant]
     Active Substance: CALCIUM POLYCARBOPHIL
     Dosage: UNK
  4. IBUPROFEN [Concomitant]
     Active Substance: IBUPROFEN
  5. LOSARTAN POTASSIUM [Concomitant]
     Active Substance: LOSARTAN POTASSIUM
  6. MAGNESIUM [Concomitant]
     Active Substance: MAGNESIUM
  7. MELATONIN [Concomitant]
     Active Substance: MELATONIN
  8. MONTELUKAST [Concomitant]
     Active Substance: MONTELUKAST
  9. POTASSIUM [Concomitant]
     Active Substance: POTASSIUM
  10. PREDNISONE [Concomitant]
     Active Substance: PREDNISONE
  11. PREDNISONE [Concomitant]
     Active Substance: PREDNISONE
  12. PROMETHAZINE [Concomitant]
     Active Substance: PROMETHAZINE HYDROCHLORIDE
  13. ROSUVASTATIN [Concomitant]
     Active Substance: ROSUVASTATIN

REACTIONS (2)
  - Arthralgia [Unknown]
  - Product use in unapproved indication [Unknown]
